FAERS Safety Report 11402486 (Version 1)
Quarter: 2015Q3

REPORT INFORMATION
  Report Type: Spontaneous
  Country: US (occurrence: US)
  Receive Date: 20150821
  Receipt Date: 20150821
  Transmission Date: 20151125
  Serious: No
  Sender: FDA-Public Use
  Company Number: US-ROCHE-1306373

PATIENT
  Sex: Female

DRUGS (4)
  1. HYDROCODONE BITARTRATE. [Concomitant]
     Active Substance: HYDROCODONE BITARTRATE
     Dosage: ONE TABLET EVERY 6 HOURS
     Route: 065
  2. RIBASPHERE [Suspect]
     Active Substance: RIBAVIRIN
     Indication: CHRONIC HEPATITIS C
     Dosage: DIVIDED DOSES
     Route: 048
     Dates: start: 20131022
  3. PEGASYS [Suspect]
     Active Substance: PEGINTERFERON ALFA-2A
     Indication: CHRONIC HEPATITIS C
     Dosage: PROCLICK AUTOINJECTOR
     Route: 058
     Dates: start: 20131022
  4. ACETAMINOPHEN. [Concomitant]
     Active Substance: ACETAMINOPHEN
     Indication: ARTHRALGIA
     Dosage: ONE TABLET EVERY 6 HOURS
     Route: 065

REACTIONS (9)
  - Diarrhoea [Recovered/Resolved]
  - Nausea [Unknown]
  - Oropharyngeal pain [Unknown]
  - Irritability [Unknown]
  - Abdominal pain upper [Unknown]
  - Dry mouth [Unknown]
  - Insomnia [Unknown]
  - Vomiting [Unknown]
  - Arthralgia [Unknown]
